FAERS Safety Report 15472903 (Version 2)
Quarter: 2019Q1

REPORT INFORMATION
  Report Type: Spontaneous
  Country: US (occurrence: US)
  Receive Date: 20181008
  Receipt Date: 20190321
  Transmission Date: 20190417
  Serious: Yes (Other)
  Sender: FDA-Public Use
  Company Number: US-PFIZER INC-2017514485

PATIENT
  Age: 62 Year
  Sex: Female
  Weight: 65.77 kg

DRUGS (8)
  1. GENOTROPIN [Suspect]
     Active Substance: SOMATROPIN
     Indication: WEIGHT DECREASED
     Dosage: REDUCED HER DOSE/WAS TAKING 0.2MG OR 0.3MG
     Dates: start: 201611, end: 20170926
  2. GENOTROPIN [Suspect]
     Active Substance: SOMATROPIN
     Indication: CARDIAC DISORDER
     Dosage: 0.5 MG, DAILY
     Dates: start: 2003
  3. GENOTROPIN [Suspect]
     Active Substance: SOMATROPIN
     Indication: AFFECTIVE DISORDER
     Dosage: 0.6 MG, DAILY
     Route: 058
     Dates: end: 201901
  4. GENOTROPIN [Suspect]
     Active Substance: SOMATROPIN
     Indication: COGNITIVE DISORDER
  5. GENOTROPIN [Suspect]
     Active Substance: SOMATROPIN
     Indication: GROWTH HORMONE DEFICIENCY
     Dosage: 0.5 MG, 1X/DAY
     Route: 058
  6. GENOTROPIN [Suspect]
     Active Substance: SOMATROPIN
     Indication: ASTHENIA
  7. PROLIA [Concomitant]
     Active Substance: DENOSUMAB
     Indication: BONE DISORDER
     Dosage: UNK (1 INJECTION EVERY 6 MONTHS)
  8. GENOTROPIN [Suspect]
     Active Substance: SOMATROPIN
     Indication: BONE DISORDER

REACTIONS (17)
  - Low density lipoprotein increased [Unknown]
  - Blood chloride increased [Unknown]
  - Asthenia [Not Recovered/Not Resolved]
  - Nephrolithiasis [Unknown]
  - Blood glucose increased [Unknown]
  - Depressed mood [Not Recovered/Not Resolved]
  - High density lipoprotein decreased [Unknown]
  - Blood sodium increased [Unknown]
  - Haemoglobin decreased [Unknown]
  - Red cell distribution width increased [Unknown]
  - Blood triglycerides increased [Unknown]
  - Human epidermal growth factor receptor decreased [Unknown]
  - Haematocrit decreased [Unknown]
  - Weight increased [Not Recovered/Not Resolved]
  - Intentional product use issue [Unknown]
  - Non-high-density lipoprotein cholesterol increased [Unknown]
  - Blood creatinine increased [Unknown]

NARRATIVE: CASE EVENT DATE: 201611
